FAERS Safety Report 7019208-4 (Version None)
Quarter: 2010Q3

REPORT INFORMATION
  Report Type: 
  Country: None (occurrence: None)
  Receive Date: 20100928
  Receipt Date: 20100921
  Transmission Date: 20110219
  Serious: Yes (Other)
  Sender: FDA-Public Use
  Company Number: GB-AMGEN-QUU437988

PATIENT
  Sex: Female
  Weight: 77 kg

DRUGS (6)
  1. ENBREL [Suspect]
     Indication: ANKYLOSING SPONDYLITIS
     Route: 058
     Dates: start: 20090612
  2. LIVIAL [Concomitant]
     Indication: HORMONE REPLACEMENT THERAPY
     Route: 048
     Dates: start: 20080828
  3. PARACETAMOL [Concomitant]
     Indication: ANALGESIC THERAPY
     Dosage: UNKNOWN DOSE,TWICE A DAY, AS NEEDED
     Route: 048
  4. DIHYDROCODEINE [Concomitant]
     Indication: ANALGESIC THERAPY
     Dosage: UNKNOWN DOSE, TAKEN AS NEEDED
     Route: 048
  5. LANSOPRAZOLE [Concomitant]
     Route: 048
     Dates: start: 20080807
  6. TRAMADOL [Concomitant]
     Indication: ANALGESIC THERAPY
     Route: 048
     Dates: start: 20080807

REACTIONS (1)
  - HAEMOGLOBIN INCREASED [None]
